FAERS Safety Report 9771463 (Version 2)
Quarter: 2013Q4

REPORT INFORMATION
  Report Type: Not Available
  Country: FR (occurrence: FR)
  Receive Date: 20131219
  Receipt Date: 20131223
  Transmission Date: 20140711
  Serious: Yes (Hospitalization)
  Sender: FDA-Public Use
  Company Number: FR-BEH-2013039483

PATIENT
  Age: 82 Year
  Sex: Male

DRUGS (2)
  1. HIZENTRA [Suspect]
     Dates: start: 200811, end: 20131102
  2. HIZENTRA [Suspect]
     Indication: HUMORAL IMMUNE DEFECT
     Route: 058

REACTIONS (5)
  - Retinal vein occlusion [Not Recovered/Not Resolved]
  - Visual acuity reduced [Not Recovered/Not Resolved]
  - Visual field defect [Not Recovered/Not Resolved]
  - Carotid arteriosclerosis [Not Recovered/Not Resolved]
  - Carotid artery stenosis [Not Recovered/Not Resolved]
